FAERS Safety Report 15118703 (Version 4)
Quarter: 2018Q3

REPORT INFORMATION
  Report Type: Report from Study
  Country: US (occurrence: US)
  Receive Date: 20180709
  Receipt Date: 20180807
  Transmission Date: 20181010
  Serious: Yes (Other)
  Sender: FDA-Public Use
  Company Number: US-AMGEN-USASL2018092298

PATIENT
  Age: 56 Year
  Sex: Female

DRUGS (1)
  1. ENBREL [Suspect]
     Active Substance: ETANERCEPT
     Indication: RHEUMATOID ARTHRITIS
     Dosage: 50 MG, QWK
     Route: 065

REACTIONS (7)
  - Injection site rash [Unknown]
  - Skin neoplasm excision [Unknown]
  - Injection site swelling [Unknown]
  - Injection site pruritus [Unknown]
  - Constipation [Unknown]
  - Injection site pain [Unknown]
  - Sinusitis [Unknown]

NARRATIVE: CASE EVENT DATE: 201807
